FAERS Safety Report 10883163 (Version 4)
Quarter: 2015Q2

REPORT INFORMATION
  Report Type: Spontaneous
  Country: JP (occurrence: JP)
  Receive Date: 20150303
  Receipt Date: 20150604
  Transmission Date: 20150821
  Serious: Yes (Death, Hospitalization, Other)
  Sender: FDA-Public Use
  Company Number: JP-GLAXOSMITHKLINE-B0848870A

PATIENT
  Age: 72 Year
  Sex: Male
  Weight: 65 kg

DRUGS (4)
  1. LAMOTRIGINE. [Suspect]
     Active Substance: LAMOTRIGINE
     Indication: EPILEPSY
     Dosage: 25 MG, QD
     Route: 048
     Dates: start: 20120831, end: 20120918
  2. LAMOTRIGINE. [Suspect]
     Active Substance: LAMOTRIGINE
     Dosage: 50 MG, BID
     Route: 048
     Dates: start: 20121003, end: 20121017
  3. LEXIN (CARBAMAZEPINE) [Suspect]
     Active Substance: CARBAMAZEPINE
     Indication: EPILEPSY
     Dosage: 100 MG, BID
     Route: 048
     Dates: start: 20120823, end: 20121018
  4. LAMOTRIGINE. [Suspect]
     Active Substance: LAMOTRIGINE
     Dosage: 50 MG, QD
     Route: 048
     Dates: start: 20120919, end: 20121002

REACTIONS (37)
  - Eosinophilic myocarditis [Fatal]
  - Cardiac failure [Fatal]
  - Drug reaction with eosinophilia and systemic symptoms [Recovered/Resolved]
  - Oropharyngeal pain [Unknown]
  - Renal disorder [Unknown]
  - Sudden death [Fatal]
  - Myocardial necrosis [Unknown]
  - Rash [Recovering/Resolving]
  - Prostatitis [Unknown]
  - Purpura [Unknown]
  - Circulatory collapse [Fatal]
  - Hepatic function abnormal [Unknown]
  - Pulmonary congestion [Unknown]
  - Hepatic congestion [Unknown]
  - Malaise [Unknown]
  - Constipation [Unknown]
  - Conjunctival pallor [Unknown]
  - Hepatic necrosis [Unknown]
  - Abdominal distension [Unknown]
  - Spleen congestion [Unknown]
  - Pulmonary oedema [Unknown]
  - Pericardial effusion [Unknown]
  - Alanine aminotransferase increased [Unknown]
  - Insomnia [Unknown]
  - Eosinophilia [Unknown]
  - Erythema [Unknown]
  - Cardio-respiratory arrest [Fatal]
  - Pyrexia [Unknown]
  - Pruritus [Recovering/Resolving]
  - Inflammation [Unknown]
  - Cough [Unknown]
  - Drug eruption [Recovering/Resolving]
  - Erythema multiforme [Unknown]
  - Aspartate aminotransferase increased [Unknown]
  - Hypophagia [Unknown]
  - Pleural effusion [Unknown]
  - Perivascular dermatitis [Unknown]

NARRATIVE: CASE EVENT DATE: 20121016
